FAERS Safety Report 8615161-8 (Version None)
Quarter: 2012Q3

REPORT INFORMATION
  Report Type: 
  Country: None (occurrence: None)
  Receive Date: 20120823
  Receipt Date: 20120817
  Transmission Date: 20120928
  Serious: No
  Sender: FDA-Public Use
  Company Number: US-BAYER-2012-085544

PATIENT

DRUGS (2)
  1. ALEVE (CAPLET) [Suspect]
     Indication: PAIN
     Route: 048
  2. ADVIL [Concomitant]

REACTIONS (1)
  - PAIN [None]
